FAERS Safety Report 4300866-X (Version None)
Quarter: 2004Q1

REPORT INFORMATION
  Report Type: 
  Country: None (occurrence: None)
  Receive Date: 20040220
  Receipt Date: 20020812
  Transmission Date: 20041129
  Serious: Yes (Disabling)
  Sender: FDA-Public Use
  Company Number: WAES 0208USA02294

PATIENT
  Age: 84 Year
  Sex: Female
  Weight: 84 kg

DRUGS (5)
  1. ASPIRIN [Concomitant]
     Indication: PROPHYLAXIS
  2. CELEBREX [Concomitant]
     Indication: ARTHRITIS
  3. GLYBURIDE [Concomitant]
     Indication: DIABETES MELLITUS
  4. PRINIVIL [Concomitant]
     Indication: HYPERTENSION
  5. VIOXX [Suspect]
     Indication: ARTHRITIS
     Route: 048
     Dates: start: 19990101

REACTIONS (6)
  - BLOOD PRESSURE INCREASED [None]
  - CEREBROVASCULAR ACCIDENT [None]
  - DEPRESSION [None]
  - EMOTIONAL DISTRESS [None]
  - INJURY [None]
  - IRRITABILITY [None]
